FAERS Safety Report 4281033-5 (Version None)
Quarter: 2004Q1

REPORT INFORMATION
  Report Type: 
  Country: None (occurrence: None)
  Receive Date: 20040129
  Receipt Date: 20030415
  Transmission Date: 20041129
  Serious: No
  Sender: FDA-Public Use
  Company Number: US-BRISTOL-MYERS SQUIBB COMPANY-12242996

PATIENT
  Age: 66 Year
  Sex: Male
  Weight: 145 kg

DRUGS (9)
  1. CISPLATIN [Suspect]
     Indication: TONGUE NEOPLASM MALIGNANT STAGE UNSPECIFIED
     Route: 042
     Dates: start: 20010901
  2. TAXOL [Concomitant]
     Indication: TONGUE NEOPLASM MALIGNANT STAGE UNSPECIFIED
     Route: 042
     Dates: start: 20010901, end: 20011101
  3. FLUOROURACIL [Concomitant]
     Indication: TONGUE NEOPLASM MALIGNANT STAGE UNSPECIFIED
     Route: 042
     Dates: start: 20010901, end: 20011101
  4. ZOFRAN [Concomitant]
     Indication: PREMEDICATION
  5. COMPAZINE [Concomitant]
     Indication: PREMEDICATION
  6. LEUCOVORIN CALCIUM [Concomitant]
  7. SYNTHROID [Concomitant]
  8. LIPITOR [Concomitant]
  9. PROPRANOLOL [Concomitant]

REACTIONS (2)
  - FATIGUE [None]
  - NEUROPATHY [None]
